FAERS Safety Report 26042561 (Version 3)
Quarter: 2025Q4

REPORT INFORMATION
  Report Type: Report from Study
  Country: US (occurrence: US)
  Receive Date: 20251113
  Receipt Date: 20251231
  Transmission Date: 20260118
  Serious: No
  Sender: SOLENO THERAPEUTICS
  Company Number: US-SOLENO THERAPEUTICS, INC.-SOL2025000024

PATIENT
  Age: 48 Year
  Sex: Male
  Weight: 74.84 kg

DRUGS (12)
  1. DIAZOXIDE CHOLINE [Suspect]
     Active Substance: DIAZOXIDE CHOLINE
     Indication: Prader-Willi syndrome
     Dosage: UNK
     Route: 048
     Dates: start: 20250516, end: 2025
  2. DIAZOXIDE CHOLINE [Suspect]
     Active Substance: DIAZOXIDE CHOLINE
     Dosage: 375 MILLIGRAM, ONCE DAILY (ONE TABLET OF 75 MG WITH 2 TABLETS OF 150 MG)
     Route: 048
     Dates: start: 2025
  3. ACETYLCYSTEINE [Suspect]
     Active Substance: ACETYLCYSTEINE
     Indication: Product used for unknown indication
     Dosage: 600 MILLIGRAM, QD
     Route: 065
     Dates: start: 202511, end: 2025
  4. ACETYLCYSTEINE [Suspect]
     Active Substance: ACETYLCYSTEINE
     Dosage: 1200 MILLIGRAM, QD
     Route: 065
     Dates: start: 2025, end: 2025
  5. CALCIUM CARBONATE [Concomitant]
     Active Substance: CALCIUM CARBONATE
     Indication: Phytotherapy
     Dosage: UNK UNK, BID
     Route: 065
  6. ALLEGRA [Concomitant]
     Active Substance: FEXOFENADINE HYDROCHLORIDE
     Indication: Hypersensitivity
     Dosage: UNK UNK, QD
     Route: 065
  7. MINERALS\VITAMINS [Concomitant]
     Active Substance: MINERALS\VITAMINS
     Indication: Hypovitaminosis
     Dosage: UNK UNK, QD
     Route: 065
  8. PROZAC [Concomitant]
     Active Substance: FLUOXETINE HYDROCHLORIDE
     Indication: Depression
     Dosage: UNK UNK, QD
     Route: 065
  9. RISPERDAL [Concomitant]
     Active Substance: RISPERIDONE
     Indication: Mood swings
     Dosage: UNK UNK, QD
     Route: 065
  10. VITAMIN D3 [Concomitant]
     Active Substance: CHOLECALCIFEROL
     Indication: Phytotherapy
     Dosage: UNK UNK, QD
     Route: 065
  11. PSYLLIUM [Concomitant]
     Active Substance: PLANTAGO SEED
     Indication: Constipation
     Dosage: UNK UNK, QD
     Route: 065
  12. MIRALAX [Concomitant]
     Active Substance: POLYETHYLENE GLYCOL 3350
     Indication: Constipation
     Dosage: UNK UNK, PRN
     Route: 065

REACTIONS (7)
  - Headache [Recovered/Resolved]
  - Feeling of relaxation [Unknown]
  - Peripheral swelling [Recovered/Resolved]
  - Nasopharyngitis [Recovered/Resolved]
  - Blood glucose increased [Recovered/Resolved]
  - Hair growth abnormal [Unknown]
  - Weight increased [Unknown]

NARRATIVE: CASE EVENT DATE: 20250101
